FAERS Safety Report 8411265-3 (Version None)
Quarter: 2012Q2

REPORT INFORMATION
  Report Type: 
  Country: None (occurrence: None)
  Receive Date: 20120531
  Receipt Date: 20120531
  Transmission Date: 20120825
  Serious: Yes (Life-Threatening, Hospitalization)
  Sender: FDA-Public Use
  Company Number: None

PATIENT
  Age: 46 Year
  Sex: Male
  Weight: 129.2752 kg

DRUGS (1)
  1. ROCEPHIN [Suspect]
     Indication: OSTEOMYELITIS
     Dosage: 2G IV Q24H IV
     Route: 042
     Dates: start: 20120201, end: 20120401

REACTIONS (9)
  - VOMITING [None]
  - HEPATIC FUNCTION ABNORMAL [None]
  - SERUM SICKNESS [None]
  - PYREXIA [None]
  - DIARRHOEA [None]
  - NAUSEA [None]
  - RENAL FAILURE ACUTE [None]
  - PANCREATITIS ACUTE [None]
  - URTICARIA [None]
